FAERS Safety Report 18658050 (Version 1)
Quarter: 2020Q4

REPORT INFORMATION
  Report Type: Spontaneous
  Country: MX (occurrence: MX)
  Receive Date: 20201223
  Receipt Date: 20201223
  Transmission Date: 20210114
  Serious: Yes (Other)
  Sender: FDA-Public Use
  Company Number: MX-FRESENIUS KABI-FK202013860

PATIENT
  Age: 13 Year
  Sex: Female

DRUGS (8)
  1. MERCAPTOPURINE. [Suspect]
     Active Substance: MERCAPTOPURINE
     Indication: ACUTE MYELOID LEUKAEMIA
     Dosage: 75 MG/M2 ON DAYS 1-4?FIRST CYCLE OF CHEMOTHERAPY
     Route: 048
     Dates: start: 20190112
  2. ETOPOSIDE (MANUFACTURER UNKNOWN) [Suspect]
     Active Substance: ETOPOSIDE
     Dosage: THIRD CYCLE OF CHEMOTHERAPY (100 MG/M2 ON DAYS 2-5)
     Route: 042
     Dates: start: 20190316
  3. ETOPOSIDE (MANUFACTURER UNKNOWN) [Suspect]
     Active Substance: ETOPOSIDE
     Indication: ACUTE MYELOID LEUKAEMIA
     Dosage: FIRST CYCLE OF CHEMOTHERAPY
     Route: 042
     Dates: start: 20190112
  4. CYTARABINE. [Suspect]
     Active Substance: CYTARABINE
     Dosage: SECOND CYCLE (100 MG/M2 ON DAYS 1-5)
     Route: 042
     Dates: start: 201902
  5. MITOXANTRONE [Suspect]
     Active Substance: MITOXANTRONE HYDROCHLORIDE
     Indication: ACUTE MYELOID LEUKAEMIA
     Dosage: 10 MG/M2 ON DAYS 1-3.
     Route: 042
     Dates: start: 201902
  6. CYTARABINE. [Suspect]
     Active Substance: CYTARABINE
     Indication: ACUTE MYELOID LEUKAEMIA
     Dosage: FIRST CYCLE OF CHEMOTHERAPY
     Route: 042
     Dates: start: 20190112
  7. CYTARABINE. [Suspect]
     Active Substance: CYTARABINE
     Dosage: 2 G/M2 TWICE DAILY ON DAYS 1-3 ?THIRD CYCLE OF CHEMOTHERAPY
     Route: 042
     Dates: start: 20190316
  8. DOXORUBICIN [Suspect]
     Active Substance: DOXORUBICIN
     Indication: ACUTE MYELOID LEUKAEMIA
     Dosage: 75 MG/M2 ON DAY 5 FIRST CYCLE OF CHEMOTHERAPY
     Route: 065
     Dates: start: 20190112

REACTIONS (5)
  - Pancytopenia [Unknown]
  - Epistaxis [Unknown]
  - Haematochezia [Unknown]
  - Proctitis [Unknown]
  - Neutropenic colitis [Unknown]
